FAERS Safety Report 11685270 (Version 1)
Quarter: 2015Q4

REPORT INFORMATION
  Report Type: Spontaneous
  Country: US (occurrence: US)
  Receive Date: 20151030
  Receipt Date: 20151030
  Transmission Date: 20160304
  Serious: No
  Sender: FDA-Public Use
  Company Number: US-ASTRAZENECA-2015SF01731

PATIENT
  Age: 12520 Day
  Sex: Male
  Weight: 86.2 kg

DRUGS (13)
  1. SEROQUEL [Suspect]
     Active Substance: QUETIAPINE FUMARATE
     Indication: DEPRESSION
     Route: 048
     Dates: start: 20151018
  2. EFFEXOR [Concomitant]
     Active Substance: VENLAFAXINE HYDROCHLORIDE
     Indication: DEPRESSION
  3. SEROQUEL [Suspect]
     Active Substance: QUETIAPINE FUMARATE
     Indication: DEPRESSION
     Dosage: TEVA, 100MG, AT NIGHT
     Route: 048
     Dates: start: 20150912, end: 201510
  4. SEROQUEL [Suspect]
     Active Substance: QUETIAPINE FUMARATE
     Indication: DEPRESSION
     Route: 048
     Dates: start: 20151018
  5. EFFEXOR [Concomitant]
     Active Substance: VENLAFAXINE HYDROCHLORIDE
     Indication: DEPRESSION
  6. BUSPAR [Concomitant]
     Active Substance: BUSPIRONE HYDROCHLORIDE
     Indication: DEPRESSION
  7. SEROQUEL [Suspect]
     Active Substance: QUETIAPINE FUMARATE
     Indication: DEPRESSION
     Dosage: TEVA, 25MG, TWO TIMES A DAY
     Route: 048
     Dates: start: 20150912, end: 201510
  8. SEROQUEL [Suspect]
     Active Substance: QUETIAPINE FUMARATE
     Indication: DEPRESSION
     Route: 048
  9. SEROQUEL [Suspect]
     Active Substance: QUETIAPINE FUMARATE
     Indication: DEPRESSION
     Route: 048
  10. SEROQUEL [Suspect]
     Active Substance: QUETIAPINE FUMARATE
     Indication: DEPRESSION
     Dosage: TEVA, 25MG, TWO TIMES A DAY
     Route: 048
     Dates: start: 20150912, end: 201510
  11. BUSPAR [Concomitant]
     Active Substance: BUSPIRONE HYDROCHLORIDE
     Indication: DEPRESSION
  12. SEROQUEL [Suspect]
     Active Substance: QUETIAPINE FUMARATE
     Indication: DEPRESSION
     Dosage: TEVA, 100MG, AT NIGHT
     Route: 048
     Dates: start: 20150912, end: 201510
  13. DIAVAN [Concomitant]
     Active Substance: ASCORBIC ACID/ CHROMIUM/ SELENIUM/VANADYL SULFATE
     Indication: HYPERTENSION

REACTIONS (6)
  - Feeling abnormal [Not Recovered/Not Resolved]
  - Drug administration error [Unknown]
  - Intentional product use issue [Unknown]
  - Intentional product misuse [Unknown]
  - Drug dispensing error [Unknown]
  - Abdominal discomfort [Not Recovered/Not Resolved]

NARRATIVE: CASE EVENT DATE: 20151018
